FAERS Safety Report 6521326-1 (Version None)
Quarter: 2009Q4

REPORT INFORMATION
  Report Type: 
  Country: None (occurrence: None)
  Receive Date: 20091230
  Receipt Date: 20091221
  Transmission Date: 20100525
  Serious: Yes (Hospitalization, Other)
  Sender: FDA-Public Use
  Company Number: US-JNJFOC-20091206648

PATIENT
  Sex: Female
  Weight: 56.7 kg

DRUGS (3)
  1. DURAGESIC-100 [Suspect]
     Indication: ARTHRALGIA
     Dosage: TWO 100.0 UG/HR PATCHES
     Route: 062
  2. FENTANYL CITRATE [Suspect]
     Indication: ARTHRALGIA
     Dosage: TWO 100.0 UG/HR PATCHES
     Route: 062
  3. SANDOZ FENTANYL TRANSDERMAL SYSTEM [Suspect]
     Indication: ARTHRALGIA
     Dosage: TWO 100.0 UG/HR PATCHES
     Route: 062

REACTIONS (19)
  - ARTHRITIS INFECTIVE [None]
  - ARTHROPATHY [None]
  - BODY HEIGHT DECREASED [None]
  - DETOXIFICATION [None]
  - DISORIENTATION [None]
  - DRUG DOSE OMISSION [None]
  - EXPRESSIVE LANGUAGE DISORDER [None]
  - FALL [None]
  - FEMUR FRACTURE [None]
  - GAIT DISTURBANCE [None]
  - HEAD INJURY [None]
  - HIP ARTHROPLASTY [None]
  - HYPERHIDROSIS [None]
  - ILL-DEFINED DISORDER [None]
  - INFECTION [None]
  - PAIN [None]
  - RIB FRACTURE [None]
  - SPINAL FRACTURE [None]
  - TREMOR [None]
